FAERS Safety Report 6729880-1 (Version None)
Quarter: 2010Q2

REPORT INFORMATION
  Report Type: 
  Country: None (occurrence: None)
  Receive Date: 20100518
  Receipt Date: 20100415
  Transmission Date: 20101027
  Serious: No
  Sender: FDA-Public Use
  Company Number: US-BAYER-201022243GPV

PATIENT
  Age: 76 Year
  Sex: Female

DRUGS (1)
  1. NAPROSYN [Suspect]
     Indication: DRUG USE FOR UNKNOWN INDICATION
     Route: 065

REACTIONS (3)
  - BURNING SENSATION [None]
  - PAIN [None]
  - PRURITUS [None]
